FAERS Safety Report 9382246 (Version 1)
Quarter: 2013Q3

REPORT INFORMATION
  Report Type: Spontaneous
  Country: US (occurrence: None)
  Receive Date: 20130702
  Receipt Date: 20130702
  Transmission Date: 20140515
  Serious: Yes (Other)
  Sender: FDA-Public Use
  Company Number: None

PATIENT
  Age: 70 Year
  Sex: Female
  Weight: 77.11 kg

DRUGS (5)
  1. MYRBETRIQ [Suspect]
     Indication: BLADDER DISORDER
     Dosage: ONE PILL
     Route: 048
     Dates: start: 20130321, end: 20130323
  2. MYRBETRIQ [Suspect]
     Indication: URINARY INCONTINENCE
     Dosage: ONE PILL
     Route: 048
     Dates: start: 20130321, end: 20130323
  3. INSULIN [Concomitant]
  4. PROGRAF [Concomitant]
  5. VITAMIN D [Concomitant]

REACTIONS (2)
  - Blood blister [None]
  - Scar [None]
